FAERS Safety Report 7564249-1 (Version None)
Quarter: 2011Q2

REPORT INFORMATION
  Report Type: 
  Country: None (occurrence: None)
  Receive Date: 20110622
  Receipt Date: 20110608
  Transmission Date: 20111010
  Serious: Yes (Other)
  Sender: FDA-Public Use
  Company Number: PHFR2011GB02890

PATIENT
  Sex: Female
  Weight: 97.8 kg

DRUGS (2)
  1. CLOZAPINE [Suspect]
     Route: 048
     Dates: start: 20110610
  2. CLOZAPINE [Suspect]
     Indication: SCHIZOPHRENIA
     Dosage: 150 MG MANE, 400 MG NOCTE
     Route: 048
     Dates: start: 20080215, end: 20110504

REACTIONS (3)
  - TACHYCARDIA [None]
  - LOWER RESPIRATORY TRACT INFECTION [None]
  - CARDIOMEGALY [None]
